FAERS Safety Report 16694774 (Version 11)
Quarter: 2025Q2

REPORT INFORMATION
  Report Type: Spontaneous
  Country: US (occurrence: US)
  Receive Date: 20190812
  Receipt Date: 20250424
  Transmission Date: 20250717
  Serious: Yes (Other)
  Sender: PFIZER
  Company Number: US-PFIZER INC-2019341258

PATIENT
  Age: 65 Year
  Sex: Female
  Weight: 76 kg

DRUGS (3)
  1. XELJANZ XR [Suspect]
     Active Substance: TOFACITINIB CITRATE
     Indication: Rheumatoid arthritis
     Dosage: 11 MG, 1X/DAY
     Dates: start: 2014, end: 2014
  2. XELJANZ XR [Suspect]
     Active Substance: TOFACITINIB CITRATE
     Dosage: 11 MG, DAILY
     Route: 048
  3. ADVAIR HFA [Concomitant]
     Active Substance: FLUTICASONE PROPIONATE\SALMETEROL XINAFOATE
     Indication: Asthma
     Dosage: 2 PUFFS, 2X/DAY

REACTIONS (10)
  - Surgical failure [Unknown]
  - Hysterectomy [Unknown]
  - Lung operation [Unknown]
  - Ankle operation [Unknown]
  - Pulmonary embolism [Unknown]
  - Fall [Unknown]
  - Tibia fracture [Unknown]
  - Fibula fracture [Unknown]
  - Motor dysfunction [Unknown]
  - Bradyphrenia [Unknown]

NARRATIVE: CASE EVENT DATE: 20200811
